FAERS Safety Report 25017634 (Version 1)
Quarter: 2025Q1

REPORT INFORMATION
  Report Type: Spontaneous
  Country: US (occurrence: None)
  Receive Date: 20250226
  Receipt Date: 20250226
  Transmission Date: 20250409
  Serious: Yes (Other)
  Sender: FDA-CTU
  Company Number: None

PATIENT
  Age: 73 Year
  Sex: Female
  Weight: 68.04 kg

DRUGS (4)
  1. BROMFENAC\MOXIFLOXACIN\PREDNISOLONE ACETATE [Suspect]
     Active Substance: BROMFENAC\MOXIFLOXACIN\PREDNISOLONE ACETATE
     Indication: Cataract operation
     Dosage: FREQUENCY: 1ST WK 4 TIME A DAY ?2ND WK 3 TIMES A DAY ?3RD WK 2 TIMES A DAY?4TH WK 1 TIME A DAY?OTHER ROUTE : EYE DROPS ??IN MY EYE?
     Route: 050
     Dates: start: 20240604, end: 20240806
  2. BROMFENAC\MOXIFLOXACIN\PREDNISOLONE ACETATE [Suspect]
     Active Substance: BROMFENAC\MOXIFLOXACIN\PREDNISOLONE ACETATE
     Indication: Postoperative care
  3. LEVOTHYROXINE [Concomitant]
     Active Substance: LEVOTHYROXINE
  4. OXYBUTYNIN [Concomitant]
     Active Substance: OXYBUTYNIN

REACTIONS (2)
  - Eyelid disorder [None]
  - Skin discolouration [None]

NARRATIVE: CASE EVENT DATE: 20240415
